FAERS Safety Report 16942570 (Version 1)
Quarter: 2019Q4

REPORT INFORMATION
  Report Type: Spontaneous
  Country: US (occurrence: US)
  Receive Date: 20191021
  Receipt Date: 20191021
  Transmission Date: 20200122
  Serious: Yes (Life-Threatening, Hospitalization)
  Sender: FDA-Public Use
  Company Number: US-JNJFOC-20191016262

PATIENT
  Age: 80 Year
  Sex: Male

DRUGS (1)
  1. TYLENOL [Suspect]
     Active Substance: ACETAMINOPHEN
     Indication: BACK PAIN
     Dosage: TWO TO THREE TABLETS DAILY FOR CHRONIC LOWER BACK PAIN FOR THE PAST 2 YEARS
     Route: 065

REACTIONS (4)
  - Incorrect dose administered [Unknown]
  - Renal failure [Unknown]
  - Toxicity to various agents [Unknown]
  - Acute hepatic failure [Recovered/Resolved]
